FAERS Safety Report 16689137 (Version 1)
Quarter: 2019Q3

REPORT INFORMATION
  Report Type: Report from Study
  Country: IT (occurrence: IT)
  Receive Date: 20190809
  Receipt Date: 20190809
  Transmission Date: 20191004
  Serious: Yes (Death, Hospitalization, Other)
  Sender: FDA-Public Use
  Company Number: IT-BRISTOL-MYERS SQUIBB COMPANY-BMS-2019-073608

PATIENT
  Age: 47 Year
  Sex: Male

DRUGS (2)
  1. IPILIMUMAB [Suspect]
     Active Substance: IPILIMUMAB
     Indication: RENAL CELL CARCINOMA
     Dosage: 65 MILLIGRAM, Q3WK
     Route: 042
     Dates: start: 20190617
  2. NIVOLUMAB [Suspect]
     Active Substance: NIVOLUMAB
     Indication: RENAL CELL CARCINOMA
     Dosage: 200 MILLIGRAM, Q3WK
     Route: 042
     Dates: start: 20190617

REACTIONS (3)
  - Blood thyroid stimulating hormone increased [Unknown]
  - Myocarditis [Fatal]
  - Renal impairment [Unknown]

NARRATIVE: CASE EVENT DATE: 20190722
